FAERS Safety Report 8593080-3 (Version None)
Quarter: 2012Q3

REPORT INFORMATION
  Report Type: 
  Country: None (occurrence: None)
  Receive Date: 20120814
  Receipt Date: 20120809
  Transmission Date: 20120928
  Serious: Yes (Other)
  Sender: FDA-Public Use
  Company Number: AU-GLAXOSMITHKLINE-B0822491A

PATIENT
  Sex: Female

DRUGS (3)
  1. FLUTICASONE PROPIONATE/SALMETEROL [Suspect]
     Indication: PRODUCT USED FOR UNKNOWN INDICATION
     Route: 065
  2. PERINDOPRIL ERBUMINE [Concomitant]
  3. NORVASC [Concomitant]
     Dosage: 5MG PER DAY

REACTIONS (3)
  - DRUG INEFFECTIVE [None]
  - PRODUCT QUALITY ISSUE [None]
  - ASTHMA [None]
